FAERS Safety Report 25998549 (Version 1)
Quarter: 2025Q4

REPORT INFORMATION
  Report Type: Spontaneous
  Country: EU (occurrence: EU)
  Receive Date: 20251105
  Receipt Date: 20251105
  Transmission Date: 20260118
  Serious: Yes (Other)
  Sender: AMGEN
  Company Number: EU-AMGEN-GRCSP2025214457

PATIENT
  Age: 32 Year
  Sex: Female

DRUGS (5)
  1. FILGRASTIM [Suspect]
     Active Substance: FILGRASTIM
     Indication: Neutropenia
     Dosage: 5 MICROGRAM/KILOGRAM, QD
     Route: 058
  2. FILGRASTIM [Suspect]
     Active Substance: FILGRASTIM
     Dosage: 5 MICROGRAM/KILOGRAM, QWK (DOSE REDUCTION)
     Route: 058
  3. PROLIA [Suspect]
     Active Substance: DENOSUMAB
     Indication: Osteoporosis
     Dosage: 60 MILLIGRAM, Q6MO
     Route: 065
  4. ALLOPURINOL [Concomitant]
     Active Substance: ALLOPURINOL
     Indication: Hyperuricaemia
     Dosage: UNK
     Route: 065
  5. MESALAMINE [Concomitant]
     Active Substance: MESALAMINE
     Indication: Inflammatory bowel disease
     Dosage: UNK
     Route: 065

REACTIONS (13)
  - Primary hypogonadism [Recovering/Resolving]
  - Premature menopause [Recovering/Resolving]
  - Stomatitis [Recovering/Resolving]
  - Pneumonia [Recovering/Resolving]
  - Periodontitis [Recovering/Resolving]
  - Tonsillitis [Recovering/Resolving]
  - Pharyngitis [Recovering/Resolving]
  - Subcutaneous abscess [Recovering/Resolving]
  - Inflammatory bowel disease [Recovering/Resolving]
  - Neutropenia [Recovering/Resolving]
  - Urinary tract infection [Recovering/Resolving]
  - Off label use [Unknown]
  - Maternal exposure during pregnancy [Recovered/Resolved]
